FAERS Safety Report 7092304-1 (Version None)
Quarter: 2010Q4

REPORT INFORMATION
  Report Type: 
  Country: None (occurrence: None)
  Receive Date: 20101109
  Receipt Date: 20101027
  Transmission Date: 20110411
  Serious: Yes (Other)
  Sender: FDA-Public Use
  Company Number: PHHY2010NL72528

PATIENT
  Sex: Female

DRUGS (7)
  1. ACLASTA [Suspect]
     Indication: OSTEOPOROSIS
     Dosage: 5 MG
     Dates: start: 20101021
  2. THYRAX [Concomitant]
     Dosage: 0.15
  3. LASIX [Concomitant]
     Dosage: 40
  4. SELOKEEN ZOC [Concomitant]
     Dosage: 50
  5. OMEPRAZOLE [Concomitant]
     Dosage: 40
  6. HEMERAN [Concomitant]
     Dosage: ONCE PER TWO WEEKS
  7. PREDNISOLON [Concomitant]
     Dosage: 10 MG PER DAY

REACTIONS (3)
  - CHEST DISCOMFORT [None]
  - PALPITATIONS [None]
  - RENAL IMPAIRMENT [None]
